FAERS Safety Report 24169907 (Version 3)
Quarter: 2024Q4

REPORT INFORMATION
  Report Type: Spontaneous
  Country: JP (occurrence: JP)
  Receive Date: 20240803
  Receipt Date: 20241007
  Transmission Date: 20250115
  Serious: Yes (Hospitalization, Other)
  Sender: ABBVIE
  Company Number: JP-ABBVIE-5777516

PATIENT
  Age: 46 Year
  Sex: Male

DRUGS (4)
  1. RINVOQ [Suspect]
     Active Substance: UPADACITINIB
     Indication: Crohn^s disease
     Dosage: TIME INTERVAL: 0.33333333 DAYS: 45 MILLIGRAM?FORM STRENGTH:15 MILLIGRAM
     Route: 048
     Dates: start: 20240327, end: 20240417
  2. RINVOQ [Suspect]
     Active Substance: UPADACITINIB
     Indication: Crohn^s disease
     Dosage: FORM STRENGTH:15 MILLIGRAM
     Route: 048
     Dates: start: 20240428, end: 20240626
  3. RINVOQ [Suspect]
     Active Substance: UPADACITINIB
     Indication: Crohn^s disease
     Dosage: 30 MILLIGRAM
     Route: 048
     Dates: start: 20240626
  4. SULFASALAZINE [Concomitant]
     Active Substance: SULFASALAZINE
     Indication: Crohn^s disease
     Dosage: TIME INTERVAL: 0.16666667 DAYS: 3000 MILLIGRAM
     Route: 048
     Dates: start: 20220413

REACTIONS (3)
  - Deep vein thrombosis [Recovered/Resolved]
  - Dermatitis atopic [Recovering/Resolving]
  - Fibrin D dimer increased [Recovering/Resolving]

NARRATIVE: CASE EVENT DATE: 20240401
